FAERS Safety Report 14917863 (Version 2)
Quarter: 2018Q2

REPORT INFORMATION
  Report Type: Spontaneous
  Country: US (occurrence: US)
  Receive Date: 20180521
  Receipt Date: 20180522
  Transmission Date: 20180711
  Serious: Yes (Hospitalization, Other)
  Sender: FDA-Public Use
  Company Number: US-AUROBINDO-AUR-APL-2018-025824

PATIENT
  Age: 23 Year
  Sex: Male

DRUGS (5)
  1. PREDNISONE. [Suspect]
     Active Substance: PREDNISONE
     Indication: PRODUCT USED FOR UNKNOWN INDICATION
     Dosage: UNK
     Route: 065
  2. MESALAZINE [Suspect]
     Active Substance: MESALAMINE
     Indication: PRODUCT USED FOR UNKNOWN INDICATION
     Dosage: 800 MILLIGRAM, 3 TIMES A DAY
     Route: 048
  3. MESALAZINE [Suspect]
     Active Substance: MESALAMINE
     Dosage: 4.8 MILLIGRAM, DAILY
     Route: 065
  4. MESALAZINE [Suspect]
     Active Substance: MESALAMINE
     Dosage: 2.4 MILLIGRAM, DAILY
     Route: 065
  5. LEVOTHYROXINE SODIUM. [Suspect]
     Active Substance: LEVOTHYROXINE SODIUM
     Indication: PRODUCT USED FOR UNKNOWN INDICATION
     Dosage: UNK
     Route: 065

REACTIONS (12)
  - Colitis ulcerative [Unknown]
  - Condition aggravated [Unknown]
  - Abdominal pain [Unknown]
  - Dizziness [Unknown]
  - Palpitations [Recovered/Resolved]
  - Rectal haemorrhage [Unknown]
  - Cardiotoxicity [Recovered/Resolved]
  - Diarrhoea [Unknown]
  - Myocarditis [Recovered/Resolved]
  - Chest pain [Recovered/Resolved]
  - Vomiting [Unknown]
  - Nausea [Unknown]
